FAERS Safety Report 7006536-1 (Version None)
Quarter: 2010Q3

REPORT INFORMATION
  Report Type: 
  Country: None (occurrence: None)
  Receive Date: 20100921
  Receipt Date: 20100921
  Transmission Date: 20110219
  Serious: Yes (Other)
  Sender: FDA-Public Use
  Company Number: None

PATIENT
  Age: 2 Day
  Sex: Male
  Weight: 69.8539 kg

DRUGS (1)
  1. PREVACID [Suspect]

REACTIONS (2)
  - HYPERSOMNIA [None]
  - SOMNOLENCE [None]
